FAERS Safety Report 24574467 (Version 1)
Quarter: 2024Q4

REPORT INFORMATION
  Report Type: Report from Study
  Country: AE (occurrence: AE)
  Receive Date: 20241104
  Receipt Date: 20241104
  Transmission Date: 20250115
  Serious: Yes (Other)
  Sender: ROCHE
  Company Number: AE-ROCHE-10000117942

PATIENT
  Age: 31 Year
  Sex: Female

DRUGS (5)
  1. PERJETA [Suspect]
     Active Substance: PERTUZUMAB
     Indication: Breast cancer
     Route: 065
     Dates: start: 20240518, end: 20240811
  2. HERCEPTIN [Suspect]
     Active Substance: TRASTUZUMAB
     Indication: Breast cancer
     Route: 065
  3. DOCETAXEL [Concomitant]
     Active Substance: DOCETAXEL
  4. CARBOPLATIN [Concomitant]
     Active Substance: CARBOPLATIN
  5. GOSERELIN [Concomitant]
     Active Substance: GOSERELIN

REACTIONS (5)
  - Breast mass [Unknown]
  - Invasive ductal breast carcinoma [Unknown]
  - Metastatic neoplasm [Unknown]
  - Disease recurrence [Unknown]
  - Pulmonary fibrosis [Unknown]

NARRATIVE: CASE EVENT DATE: 20240829
